FAERS Safety Report 14273933 (Version 1)
Quarter: 2017Q4

REPORT INFORMATION
  Report Type: Spontaneous
  Country: US (occurrence: US)
  Receive Date: 20171211
  Receipt Date: 20171211
  Transmission Date: 20180321
  Serious: Yes (Life-Threatening, Hospitalization, Other)
  Sender: FDA-Public Use
  Company Number: US-OTSUKA-J20030745

PATIENT
  Age: 25 Year
  Sex: Male

DRUGS (33)
  1. ABILIFY [Suspect]
     Active Substance: ARIPIPRAZOLE
     Indication: HALLUCINATION, AUDITORY
     Route: 048
     Dates: start: 20021210
  2. ABILIFY [Suspect]
     Active Substance: ARIPIPRAZOLE
     Indication: HALLUCINATION, VISUAL
  3. INSULIN [Concomitant]
     Active Substance: INSULIN NOS
     Route: 065
  4. ZOLPIDEM TARTRATE. [Concomitant]
     Active Substance: ZOLPIDEM TARTRATE
     Route: 065
     Dates: end: 20021210
  5. VENLAFAXINE XR [Concomitant]
     Active Substance: VENLAFAXINE HYDROCHLORIDE
  6. LEXAPRO [Concomitant]
     Active Substance: ESCITALOPRAM OXALATE
     Dosage: 10 MG, UNK
     Dates: end: 20021210
  7. RISPERIDONE. [Concomitant]
     Active Substance: RISPERIDONE
     Dosage: .5 MG, QD
     Dates: end: 20021217
  8. ABILIFY [Suspect]
     Active Substance: ARIPIPRAZOLE
     Indication: FLAT AFFECT
  9. ABILIFY [Suspect]
     Active Substance: ARIPIPRAZOLE
     Indication: FEELING OF DESPAIR
  10. RISPERIDONE. [Concomitant]
     Active Substance: RISPERIDONE
     Route: 065
  11. ESCITALOPRAM [Concomitant]
     Active Substance: ESCITALOPRAM OXALATE
     Route: 065
     Dates: end: 20021210
  12. ZOLPIDEM [Concomitant]
     Active Substance: ZOLPIDEM\ZOLPIDEM TARTRATE
     Dosage: 10 MG, UNK
     Dates: end: 20021210
  13. FLEXERIL [Concomitant]
     Active Substance: CYCLOBENZAPRINE HYDROCHLORIDE
  14. ZANTAC [Concomitant]
     Active Substance: RANITIDINE HYDROCHLORIDE
  15. ABILIFY [Suspect]
     Active Substance: ARIPIPRAZOLE
     Indication: DECREASED IMMUNE RESPONSIVENESS
  16. ABILIFY [Suspect]
     Active Substance: ARIPIPRAZOLE
     Indication: FEELINGS OF WORTHLESSNESS
  17. CYCLOBENZAPRINE HCL [Concomitant]
     Active Substance: CYCLOBENZAPRINE HYDROCHLORIDE
     Route: 065
  18. FEXOFENADINE HYDROCHLORIDE. [Concomitant]
     Active Substance: FEXOFENADINE HYDROCHLORIDE
     Route: 065
  19. AMITRIPTYLINE [Concomitant]
     Active Substance: AMITRIPTYLINE
  20. ULTRAM [Concomitant]
     Active Substance: TRAMADOL HYDROCHLORIDE
  21. ABILIFY [Suspect]
     Active Substance: ARIPIPRAZOLE
     Indication: DYSPHORIA
  22. QUETIAPINE FUMARATE. [Concomitant]
     Active Substance: QUETIAPINE FUMARATE
     Route: 065
  23. FEXOFENADINE HCL [Concomitant]
     Active Substance: FEXOFENADINE HYDROCHLORIDE
  24. VENLAFAXINE HCL [Concomitant]
     Active Substance: VENLAFAXINE HYDROCHLORIDE
     Route: 065
  25. TRAMADOL HYDROCHLORIDE. [Concomitant]
     Active Substance: TRAMADOL HYDROCHLORIDE
     Route: 065
  26. ABILIFY [Suspect]
     Active Substance: ARIPIPRAZOLE
     Indication: ANHEDONIA
  27. AMITRIPTYLINE HYDROCHLORIDE. [Concomitant]
     Active Substance: AMITRIPTYLINE HYDROCHLORIDE
     Route: 065
  28. RAMIPRIL. [Concomitant]
     Active Substance: RAMIPRIL
     Route: 065
  29. CELECOXIB. [Concomitant]
     Active Substance: CELECOXIB
     Route: 065
  30. RANITIDINE HYDROCHLORIDE. [Concomitant]
     Active Substance: RANITIDINE HYDROCHLORIDE
     Route: 065
  31. QUETIAPINE. [Concomitant]
     Active Substance: QUETIAPINE
  32. LORAZEPAM. [Concomitant]
     Active Substance: LORAZEPAM
     Route: 065
     Dates: start: 20021210
  33. LORAZEPAM. [Concomitant]
     Active Substance: LORAZEPAM
     Dosage: .5 MG, TID
     Dates: start: 20021210

REACTIONS (12)
  - Blood creatine phosphokinase increased [Unknown]
  - Neuroglycopenia [Unknown]
  - Brain hypoxia [Unknown]
  - Renal failure [Unknown]
  - Dizziness [Unknown]
  - Hypoxic-ischaemic encephalopathy [Unknown]
  - Rhabdomyolysis [Unknown]
  - Muscle rigidity [Unknown]
  - Cardiac arrest [Unknown]
  - Loss of consciousness [Unknown]
  - Pyrexia [Unknown]
  - Coma [Unknown]

NARRATIVE: CASE EVENT DATE: 20030101
